FAERS Safety Report 24791919 (Version 1)
Quarter: 2024Q4

REPORT INFORMATION
  Report Type: Spontaneous
  Country: BE (occurrence: BE)
  Receive Date: 20241231
  Receipt Date: 20241231
  Transmission Date: 20250115
  Serious: Yes (Other)
  Sender: AMGEN
  Company Number: BE-AMGEN-BELSP2024253918

PATIENT

DRUGS (1)
  1. ARANESP [Suspect]
     Active Substance: DARBEPOETIN ALFA
     Indication: Autologous haematopoietic stem cell transplant
     Dosage: UNK, DA FROM DAY 28 POST-AUTO-HCT
     Route: 065

REACTIONS (15)
  - Ischaemic cardiomyopathy [Unknown]
  - Arrhythmia [Unknown]
  - Diabetes mellitus [Unknown]
  - Nephritis [Unknown]
  - Osteonecrosis of jaw [Unknown]
  - Neuropathy peripheral [Unknown]
  - Deafness [Unknown]
  - Myocardial infarction [Unknown]
  - Neoplasm malignant [Unknown]
  - Neoplasm [Unknown]
  - Arterial disorder [Unknown]
  - Vasculitis [Unknown]
  - Thyroiditis [Unknown]
  - Infection [Unknown]
  - Hypertension [Unknown]
